FAERS Safety Report 8354911-5 (Version None)
Quarter: 2012Q2

REPORT INFORMATION
  Report Type: 
  Country: None (occurrence: None)
  Receive Date: 20120511
  Receipt Date: 20120509
  Transmission Date: 20120825
  Serious: Yes (Other)
  Sender: FDA-Public Use
  Company Number: JP-PFIZER INC-2012060014

PATIENT
  Age: 82 Year
  Sex: Male

DRUGS (5)
  1. LYRICA [Suspect]
     Indication: POST HERPETIC NEURALGIA
     Dosage: 150 MG, DAILY
     Route: 048
     Dates: start: 20120214, end: 20120101
  2. NORVASC [Concomitant]
     Dosage: 2.5 MG/DAY
     Route: 048
  3. ALPRAZOLAM [Concomitant]
     Dosage: 0.4 MG/DAY
     Route: 048
  4. ESTAZOLAM [Concomitant]
     Dosage: 2 MG/DAY
     Route: 048
  5. ASPIRIN [Concomitant]
     Dosage: 100 MG/DAY
     Route: 048

REACTIONS (3)
  - FEELING HOT [None]
  - FEELING ABNORMAL [None]
  - HYPOAESTHESIA [None]
